FAERS Safety Report 5203459-5 (Version None)
Quarter: 2007Q1

REPORT INFORMATION
  Report Type: 
  Country: None (occurrence: None)
  Receive Date: 20070110
  Receipt Date: 20061229
  Transmission Date: 20070707
  Serious: Yes (Hospitalization)
  Sender: FDA-Public Use
  Company Number: US-ROCHE-475561

PATIENT
  Age: 39 Year
  Sex: Female
  Weight: 66.4 kg

DRUGS (8)
  1. PEG-INTERFERON A-2A (RO 25-8310) [Suspect]
     Indication: HEPATITIS C
     Dosage: ADMINISTERED WEEKLY.
     Route: 058
     Dates: start: 20060915
  2. RIBAVIRIN [Suspect]
     Indication: HEPATITIS C
     Route: 048
     Dates: start: 20060915
  3. BLINDED VX-950 [Suspect]
     Indication: HEPATITIS C
     Route: 048
     Dates: start: 20060915
  4. CELEXA [Concomitant]
     Indication: DEPRESSION
     Route: 048
     Dates: start: 20060922
  5. PHENERGAN [Concomitant]
     Indication: NAUSEA
     Dosage: THERAPY DATES REPORTED AS: 15 SEP 2006 - 20 OCT 2006 AND 13 OCT 2006 - ONGOING. TAKEN AS NEEDED
     Route: 048
     Dates: start: 20060915
  6. FIORICET [Concomitant]
     Route: 048
     Dates: start: 20060915
  7. ALBUTEROL [Concomitant]
     Route: 055
  8. SEREVENT [Concomitant]
     Route: 055

REACTIONS (3)
  - BRONCHITIS [None]
  - CHRONIC OBSTRUCTIVE PULMONARY DISEASE [None]
  - RESPIRATORY DISTRESS [None]
